FAERS Safety Report 19391089 (Version 3)
Quarter: 2021Q2

REPORT INFORMATION
  Report Type: Report from Study
  Country: None (occurrence: CA)
  Receive Date: 20210609
  Receipt Date: 20210611
  Transmission Date: 20210717
  Serious: Yes (Other)
  Sender: FDA-Public Use
  Company Number: CA-ABBVIE-21K-028-3940431-00

PATIENT
  Age: 71 Year
  Sex: Female

DRUGS (1)
  1. HUMIRA [Suspect]
     Active Substance: ADALIMUMAB
     Indication: RHEUMATOID ARTHRITIS
     Route: 058
     Dates: start: 20201218

REACTIONS (13)
  - Fatigue [Not Recovered/Not Resolved]
  - Fall [Unknown]
  - Thrombosis [Unknown]
  - Asthenia [Not Recovered/Not Resolved]
  - Benign neoplasm of thyroid gland [Unknown]
  - Abdominal pain upper [Not Recovered/Not Resolved]
  - Blindness [Not Recovered/Not Resolved]
  - Muscle atrophy [Unknown]
  - Diarrhoea [Unknown]
  - Intervertebral disc disorder [Unknown]
  - Abdominal discomfort [Not Recovered/Not Resolved]
  - Pain [Unknown]
  - Abdominal distension [Not Recovered/Not Resolved]

NARRATIVE: CASE EVENT DATE: 2021
